FAERS Safety Report 9682043 (Version 1)
Quarter: 2013Q4

REPORT INFORMATION
  Report Type: Spontaneous
  Country: FR (occurrence: FR)
  Receive Date: 20131111
  Receipt Date: 20131111
  Transmission Date: 20140711
  Serious: Yes (Hospitalization)
  Sender: FDA-Public Use
  Company Number: ALCN2013FR005589

PATIENT
  Age: 73 Year
  Sex: Male

DRUGS (6)
  1. IOPIDINE [Suspect]
     Indication: PREOPERATIVE CARE
     Dosage: UNK
     Route: 047
     Dates: start: 20130619
  2. IOPIDINE [Suspect]
     Indication: POSTOPERATIVE CARE
     Dosage: UNK
     Route: 047
     Dates: start: 20130724
  3. ACULAR [Suspect]
     Indication: PREOPERATIVE CARE
     Dosage: UNK
     Route: 047
     Dates: start: 20130619
  4. ACULAR [Suspect]
     Indication: POSTOPERATIVE CARE
     Dosage: UNK
     Dates: start: 20130724
  5. MYDRIATICUM [Suspect]
     Indication: PREOPERATIVE CARE
     Dosage: UNK
     Route: 047
     Dates: start: 20130619
  6. NEOSYNEPHRINE [Suspect]
     Indication: PREOPERATIVE CARE
     Dosage: UNK
     Route: 047
     Dates: start: 20130619

REACTIONS (2)
  - Muscular weakness [Recovering/Resolving]
  - Condition aggravated [Recovering/Resolving]
